FAERS Safety Report 10742363 (Version 1)
Quarter: 2015Q1

REPORT INFORMATION
  Report Type: Spontaneous
  Country: GB (occurrence: GB)
  Receive Date: 20150127
  Receipt Date: 20150127
  Transmission Date: 20150721
  Serious: Yes (Other)
  Sender: FDA-Public Use
  Company Number: GB-BAYER-2015-011628

PATIENT
  Age: 39 Year
  Sex: Female
  Weight: 46.71 kg

DRUGS (1)
  1. MIRENA [Suspect]
     Active Substance: LEVONORGESTREL
     Indication: CONTRACEPTION
     Dosage: 20 MCG/24HR, CONT
     Route: 015
     Dates: start: 20120215, end: 20150116

REACTIONS (7)
  - Influenza like illness [Recovered/Resolved]
  - Night sweats [Recovered/Resolved]
  - Breast discharge [Recovered/Resolved]
  - Lymphadenopathy [Recovered/Resolved]
  - Breast pain [Recovered/Resolved]
  - Mood swings [Recovered/Resolved]
  - Anxiety [Recovered/Resolved]

NARRATIVE: CASE EVENT DATE: 20120308
